FAERS Safety Report 7095313-1 (Version None)
Quarter: 2010Q4

REPORT INFORMATION
  Report Type: 
  Country: None (occurrence: None)
  Receive Date: 20101018
  Receipt Date: 20100212
  Transmission Date: 20110411
  Serious: Yes (Other)
  Sender: FDA-Public Use
  Company Number: HQWYE753103AUG04

PATIENT
  Age: 49 Year
  Sex: Female
  Weight: 69.46 kg

DRUGS (5)
  1. PREMARIN [Suspect]
     Dates: start: 19931101, end: 19950201
  2. ESTRADERM [Suspect]
     Dates: start: 19950301, end: 19950801
  3. MEDROXYPROGESTERONE [Suspect]
     Dates: start: 19940701, end: 19950801
  4. PREMPHASE 14/14 [Suspect]
     Dates: start: 19950101, end: 19960101
  5. PROVERA [Suspect]
     Dates: start: 19931101, end: 19940801

REACTIONS (1)
  - BREAST CANCER [None]
